FAERS Safety Report 11032619 (Version 1)
Quarter: 2015Q2

REPORT INFORMATION
  Report Type: Spontaneous
  Country: US (occurrence: None)
  Receive Date: 20150414
  Receipt Date: 20150414
  Transmission Date: 20150821
  Serious: Yes (Other)
  Sender: FDA-Public Use
  Company Number: 001899876A

PATIENT
  Age: 75 Year
  Sex: Female

DRUGS (2)
  1. SHEER COVER NOURISHING MOISTURIZER SPF 15 [Suspect]
     Active Substance: OCTINOXATE\OCTISALATE\OXYBENZONE
     Dosage: DERMAL
     Dates: start: 20150317, end: 20150319
  2. EPIPEN [Concomitant]
     Active Substance: EPINEPHRINE

REACTIONS (4)
  - Hypersensitivity [None]
  - Pruritus [None]
  - Hyperhidrosis [None]
  - Eye pain [None]

NARRATIVE: CASE EVENT DATE: 20150317
